FAERS Safety Report 16004737 (Version 1)
Quarter: 2019Q1

REPORT INFORMATION
  Report Type: Spontaneous
  Country: US (occurrence: US)
  Receive Date: 20190225
  Receipt Date: 20190225
  Transmission Date: 20190418
  Serious: Yes (Other)
  Sender: FDA-Public Use
  Company Number: None

PATIENT
  Age: 10 Year
  Sex: Male

DRUGS (1)
  1. MYCOPHENOLATE SUSPENSION [Suspect]
     Active Substance: MYCOPHENOLIC ACID
     Indication: JUVENILE IDIOPATHIC ARTHRITIS
     Route: 048
     Dates: start: 20181218, end: 20190225

REACTIONS (4)
  - Abdominal pain upper [None]
  - Constipation [None]
  - Pain [None]
  - Chest discomfort [None]

NARRATIVE: CASE EVENT DATE: 20190224
